FAERS Safety Report 4296900-6 (Version None)
Quarter: 2004Q1

REPORT INFORMATION
  Report Type: 
  Country: None (occurrence: None)
  Receive Date: 20040126
  Receipt Date: 20031113
  Transmission Date: 20041129
  Serious: No
  Sender: FDA-Public Use
  Company Number: USA030125812

PATIENT
  Age: 13 Year
  Sex: Male
  Weight: 73 kg

DRUGS (5)
  1. STRATTERA [Suspect]
     Indication: ATTENTION DEFICIT/HYPERACTIVITY DISORDER
     Dosage: 40 MG/DAY
     Dates: start: 20030107
  2. STRATTERA [Suspect]
     Indication: IMPULSIVE BEHAVIOUR
     Dosage: 40 MG/DAY
     Dates: start: 20030107
  3. AMOXICILLIN [Concomitant]
  4. GUAIFENESIN [Concomitant]
  5. ADDERALL 10 [Concomitant]

REACTIONS (9)
  - CHEST PAIN [None]
  - DISTURBANCE IN ATTENTION [None]
  - DRUG INEFFECTIVE [None]
  - IMPULSIVE BEHAVIOUR [None]
  - MEDICATION ERROR [None]
  - NAUSEA [None]
  - OESOPHAGEAL PAIN [None]
  - SOMNOLENCE [None]
  - THROAT IRRITATION [None]
